FAERS Safety Report 6315289-1 (Version None)
Quarter: 2009Q3

REPORT INFORMATION
  Report Type: 
  Country: None (occurrence: None)
  Receive Date: 20090819
  Receipt Date: 20090116
  Transmission Date: 20100115
  Serious: Yes (Hospitalization)
  Sender: FDA-Public Use
  Company Number: PHBS2009QA00525

PATIENT
  Age: 22 Year
  Sex: Female

DRUGS (5)
  1. HYDRALAZINE HCL [Suspect]
     Indication: PRE-ECLAMPSIA
     Route: 042
  2. CYCLOSPORINE [Suspect]
     Indication: LIVER TRANSPLANT
     Dosage: 500 MG, BID
  3. METHYLDOPA [Suspect]
     Indication: HYPERTENSION
     Dosage: 500 MG, TID
  4. LABETALOL HCL [Suspect]
     Indication: HYPERTENSION
     Route: 042
  5. DEXAMETHASONE [Suspect]
     Indication: MATERNAL THERAPY TO ENHANCE FOETAL LUNG MATURITY
     Dosage: 12 MG X 2 DOSES ONLY

REACTIONS (5)
  - CAESAREAN SECTION [None]
  - DRUG EXPOSURE DURING PREGNANCY [None]
  - NORMAL NEWBORN [None]
  - PRE-ECLAMPSIA [None]
  - PREMATURE LABOUR [None]
